FAERS Safety Report 12449102 (Version 1)
Quarter: 2016Q2

REPORT INFORMATION
  Report Type: Spontaneous
  Country: US (occurrence: US)
  Receive Date: 20160608
  Receipt Date: 20160608
  Transmission Date: 20160815
  Serious: Yes (Hospitalization)
  Sender: FDA-Public Use
  Company Number: US-ELI_LILLY_AND_COMPANY-US201606001013

PATIENT
  Sex: Male

DRUGS (3)
  1. HUMALOG [Suspect]
     Active Substance: INSULIN LISPRO
     Indication: DIABETES MELLITUS
     Dosage: 40 U, TID
     Route: 065
     Dates: start: 1996
  2. LANTUS [Concomitant]
     Active Substance: INSULIN GLARGINE
  3. ASPIRIN CHILDREN [Concomitant]
     Active Substance: ASPIRIN

REACTIONS (2)
  - Myocardial infarction [Unknown]
  - Confusional state [Unknown]

NARRATIVE: CASE EVENT DATE: 2007
